FAERS Safety Report 24186495 (Version 1)
Quarter: 2024Q3

REPORT INFORMATION
  Report Type: Spontaneous
  Country: US (occurrence: US)
  Receive Date: 20240808
  Receipt Date: 20240808
  Transmission Date: 20241017
  Serious: No
  Sender: SANOFI AVENTIS
  Company Number: US-SA-SAC20240805000748

PATIENT
  Sex: Male

DRUGS (5)
  1. DUPIXENT [Suspect]
     Active Substance: DUPILUMAB
     Indication: Dermatitis atopic
     Dosage: 300 MG, QOW
     Route: 058
     Dates: start: 20180424
  2. CALCIUM [Concomitant]
     Active Substance: CALCIUM
  3. CLOBETASOL [Concomitant]
     Active Substance: CLOBETASOL
  4. FISH OIL [Concomitant]
     Active Substance: FISH OIL
  5. FLUTICASONE PROPIONATE [Concomitant]
     Active Substance: FLUTICASONE PROPIONATE

REACTIONS (2)
  - Impaired quality of life [Unknown]
  - Drug ineffective [Unknown]
